FAERS Safety Report 7601574-X (Version None)
Quarter: 2011Q3

REPORT INFORMATION
  Report Type: 
  Country: None (occurrence: None)
  Receive Date: 20110711
  Receipt Date: 20110628
  Transmission Date: 20111222
  Serious: Yes (Hospitalization)
  Sender: FDA-Public Use
  Company Number: PHHY2011NL38966

PATIENT
  Sex: Male
  Weight: 108 kg

DRUGS (14)
  1. SOTALOL HCL [Concomitant]
     Indication: ATRIAL FLUTTER
     Dosage: 40 MG, UNK
  2. TEMAZEPAM [Concomitant]
     Dosage: 10 MG
  3. AMLODIPINE [Concomitant]
     Indication: HYPERTENSION
     Dosage: 10 MG, UNK
  4. ACENOCOUMAROL [Concomitant]
  5. ALISKIREN [Suspect]
     Indication: HYPERTENSION
     Dosage: 150 MG, QD
     Route: 048
     Dates: start: 20091208, end: 20091222
  6. NOVORAPID [Concomitant]
     Indication: DIABETES MELLITUS
     Dosage: UNK
  7. TELMISARTAN [Concomitant]
     Indication: HYPERTENSION
     Dosage: 40 MG, UNK
  8. METOPROLOL TARTRATE [Concomitant]
     Dosage: 50 MG
  9. CARBASALATE CALCIUM [Concomitant]
     Indication: ARTERIOSCLEROSIS
     Dosage: 100 MG, UNK
  10. ANTICOAGULANTS [Concomitant]
  11. INSULIN GLARGINE [Concomitant]
     Indication: DIABETES MELLITUS
     Dosage: UNK
  12. SIMVASTATIN [Concomitant]
  13. OXAZEPAM [Concomitant]
     Dosage: 10 MG, UNK
  14. ANTIHYPERTENSIVES [Concomitant]

REACTIONS (3)
  - APHASIA [None]
  - ISCHAEMIC STROKE [None]
  - HEADACHE [None]
